FAERS Safety Report 5586979-3 (Version None)
Quarter: 2008Q1

REPORT INFORMATION
  Report Type: 
  Country: None (occurrence: None)
  Receive Date: 20080110
  Receipt Date: 20080103
  Transmission Date: 20080703
  Serious: Yes (Hospitalization)
  Sender: FDA-Public Use
  Company Number: A0638950A

PATIENT
  Sex: Male
  Weight: 113.6 kg

DRUGS (9)
  1. REQUIP [Suspect]
     Indication: TREMOR
     Route: 048
     Dates: start: 20031219, end: 20051017
  2. MIRAPEX [Suspect]
     Indication: TREMOR
     Route: 065
     Dates: start: 20000929, end: 20051001
  3. AMANTADINE HCL [Suspect]
     Indication: PARKINSON'S DISEASE
     Route: 048
  4. CARBIDOPA AND LEVODOPA [Concomitant]
     Dosage: 100MG FOUR TIMES PER DAY
  5. STALEVO 100 [Concomitant]
     Dosage: 100MG THREE TIMES PER DAY
  6. CLONAZEPAM [Concomitant]
  7. SEROQUEL [Concomitant]
  8. LIPITOR [Concomitant]
  9. SINEMET [Concomitant]

REACTIONS (12)
  - ANXIETY [None]
  - CONFUSIONAL STATE [None]
  - DELIRIUM [None]
  - DRUG INTOLERANCE [None]
  - FORMICATION [None]
  - HALLUCINATION [None]
  - INSOMNIA [None]
  - MAJOR DEPRESSION [None]
  - NAUSEA [None]
  - OBSESSIVE-COMPULSIVE DISORDER [None]
  - OBSESSIVE-COMPULSIVE PERSONALITY DISORDER [None]
  - PATHOLOGICAL GAMBLING [None]
